FAERS Safety Report 4281740-4 (Version None)
Quarter: 2004Q1

REPORT INFORMATION
  Report Type: 
  Country: None (occurrence: None)
  Receive Date: 20040128
  Receipt Date: 20031007
  Transmission Date: 20041129
  Serious: Yes (Death)
  Sender: FDA-Public Use
  Company Number: 028-20785-03100190

PATIENT
  Age: 53 Year
  Sex: Female

DRUGS (5)
  1. THALOMID [Suspect]
     Indication: MULTIPLE MYELOMA
     Dosage: 800 MG, QD, ORAL
     Route: 048
     Dates: start: 20001001, end: 20030901
  2. COUMADIN [Concomitant]
  3. ALKERAN [Concomitant]
  4. MS CONTIN [Concomitant]
  5. DECADRON [Concomitant]

REACTIONS (3)
  - SEPSIS [None]
  - SPINAL FRACTURE [None]
  - THROMBOPHLEBITIS [None]
